FAERS Safety Report 5670277-3 (Version None)
Quarter: 2008Q1

REPORT INFORMATION
  Report Type: 
  Country: None (occurrence: None)
  Receive Date: 20080318
  Receipt Date: 20080309
  Transmission Date: 20080703
  Serious: Yes (Death, Hospitalization)
  Sender: FDA-Public Use
  Company Number: CH-BAYER-200814714GPV

PATIENT
  Sex: Male

DRUGS (1)
  1. ULTRAVIST / IOPROMIDUM [Suspect]
     Indication: COMPUTERISED TOMOGRAM
     Route: 042

REACTIONS (1)
  - ANAPHYLACTOID SHOCK [None]
